FAERS Safety Report 9772785 (Version 1)
Quarter: 2013Q4

REPORT INFORMATION
  Report Type: Spontaneous
  Country: US (occurrence: US)
  Receive Date: 20131219
  Receipt Date: 20131219
  Transmission Date: 20140711
  Serious: Yes (Death)
  Sender: FDA-Public Use
  Company Number: US-BRISTOL-MYERS SQUIBB COMPANY-19912427

PATIENT
  Age: 59 Year
  Sex: Male

DRUGS (5)
  1. SPRYCEL [Suspect]
     Dosage: EXPIRY DATE:06-OCT-2014
     Dates: start: 20130606
  2. TASIGNA [Suspect]
     Dosage: CAPSULE,EXPIRY DATE:28-JUL-2014
     Dates: start: 20130730
  3. NEXAVAR [Suspect]
     Dosage: TABS,2TAB.IN MORNING,1 TAB IN EVENING
     Dates: start: 20120319, end: 201305
  4. ACYCLOVIR [Concomitant]
  5. MULTIVITAMIN [Concomitant]

REACTIONS (1)
  - Death [Fatal]
